FAERS Safety Report 4586274-5 (Version None)
Quarter: 2005Q1

REPORT INFORMATION
  Report Type: 
  Country: None (occurrence: None)
  Receive Date: 20050125
  Receipt Date: 20041119
  Transmission Date: 20050727
  Serious: Yes (Other)
  Sender: FDA-Public Use
  Company Number: US_0411107994

PATIENT
  Age: 56 Year
  Sex: Female
  Weight: 75 kg

DRUGS (6)
  1. EVISTA [Suspect]
  2. FORTEO [Suspect]
     Indication: OSTEOPOROSIS
     Dosage: 20 UG/1 DAY
     Dates: start: 20041118
  3. FOSAMAX [Concomitant]
  4. ACTONEL [Concomitant]
  5. MIACALCIN [Concomitant]
  6. CALCIUM GLUCONATE [Concomitant]

REACTIONS (2)
  - BREAST CANCER [None]
  - INJECTION SITE ERYTHEMA [None]
